FAERS Safety Report 6154576-7 (Version None)
Quarter: 2009Q2

REPORT INFORMATION
  Report Type: 
  Country: None (occurrence: None)
  Receive Date: 20090414
  Receipt Date: 20090408
  Transmission Date: 20091009
  Serious: Yes (Hospitalization)
  Sender: FDA-Public Use
  Company Number: US-ASTRAZENECA-2006UW12248

PATIENT
  Age: 43 Year
  Sex: Female
  Weight: 63.5 kg

DRUGS (7)
  1. SEROQUEL [Suspect]
     Indication: DEPRESSION
     Dosage: 100MG TO 400MG
     Route: 048
     Dates: start: 20000101, end: 20050101
  2. SEROQUEL [Suspect]
     Indication: BIPOLAR DISORDER
     Dosage: 100MG TO 400MG
     Route: 048
     Dates: start: 20000101, end: 20050101
  3. SEROQUEL [Suspect]
     Indication: INSOMNIA
     Dosage: 100MG TO 400MG
     Route: 048
     Dates: start: 20000101, end: 20050101
  4. SEROQUEL [Suspect]
     Dosage: 200 MG TO 1200 MG
     Route: 048
     Dates: start: 20000101, end: 20040101
  5. SEROQUEL [Suspect]
     Dosage: 200 MG TO 1200 MG
     Route: 048
     Dates: start: 20000101, end: 20040101
  6. SEROQUEL [Suspect]
     Dosage: 200 MG TO 1200 MG
     Route: 048
     Dates: start: 20000101, end: 20040101
  7. ZYPREXA [Concomitant]

REACTIONS (2)
  - MYOCARDIAL INFARCTION [None]
  - TYPE 2 DIABETES MELLITUS [None]
